FAERS Safety Report 14412272 (Version 2)
Quarter: 2018Q1

REPORT INFORMATION
  Report Type: Spontaneous
  Country: NO (occurrence: NO)
  Receive Date: 20180119
  Receipt Date: 20180215
  Transmission Date: 20180509
  Serious: Yes (Other)
  Sender: FDA-Public Use
  Company Number: NO-ASTRAZENECA-2018SE07850

PATIENT
  Age: 72 Year
  Sex: Female

DRUGS (17)
  1. PREGABALIN. [Interacting]
     Active Substance: PREGABALIN
     Indication: ARTHRALGIA
     Route: 065
  2. ACETYLSALICYLIC ACID [Concomitant]
     Active Substance: ASPIRIN
     Route: 065
  3. FENTANYL. [Interacting]
     Active Substance: FENTANYL
     Indication: BACK PAIN
     Dosage: UNKNOWN
     Route: 065
  4. FENTANYL. [Interacting]
     Active Substance: FENTANYL
     Indication: BACK PAIN
     Dosage: UNKNOWN
     Route: 062
  5. PREGABALIN. [Interacting]
     Active Substance: PREGABALIN
     Indication: BACK PAIN
     Dosage: UNKNOWN
     Route: 065
  6. ATORVASTATIN CALCIUM. [Concomitant]
     Active Substance: ATORVASTATIN CALCIUM
     Route: 065
  7. FENTANYL. [Interacting]
     Active Substance: FENTANYL
     Indication: ARTHRALGIA
     Dosage: UNKNOWN
     Route: 065
  8. PREGABALIN. [Interacting]
     Active Substance: PREGABALIN
     Indication: ARTHRALGIA
     Dosage: UNKNOWN
     Route: 065
  9. LANZOPRAZOL [Interacting]
     Active Substance: LANSOPRAZOLE
     Indication: DYSPEPSIA
     Route: 065
  10. NALOXEGOL [Suspect]
     Active Substance: NALOXEGOL
     Indication: CONSTIPATION
     Dosage: 25 MG EVERY 2 DAYS
     Route: 065
  11. FENTANYL. [Interacting]
     Active Substance: FENTANYL
     Indication: ARTHRALGIA
     Dosage: UNKNOWN
     Route: 062
  12. PREGABALIN. [Interacting]
     Active Substance: PREGABALIN
     Indication: ARTHRALGIA
     Dosage: 150.0MG UNKNOWN
     Route: 065
  13. PREGABALIN. [Interacting]
     Active Substance: PREGABALIN
     Indication: BACK PAIN
     Dosage: 150.0MG UNKNOWN
     Route: 065
  14. FENTANYL. [Interacting]
     Active Substance: FENTANYL
     Indication: ARTHRALGIA
     Dosage: UNKNOWN
     Route: 062
  15. FENTANYL. [Interacting]
     Active Substance: FENTANYL
     Indication: ARTHRALGIA
     Dosage: UNKNOWN
     Route: 065
  16. DICLOFENAC SODIUM. [Concomitant]
     Active Substance: DICLOFENAC SODIUM
     Route: 065
  17. PREGABALIN. [Interacting]
     Active Substance: PREGABALIN
     Indication: BACK PAIN
     Route: 065

REACTIONS (14)
  - Impaired gastric emptying [Unknown]
  - Myalgia [Unknown]
  - Inhibitory drug interaction [Recovered/Resolved]
  - Inappropriate schedule of drug administration [Recovered/Resolved]
  - Product use in unapproved indication [Recovered/Resolved]
  - Renal impairment [Unknown]
  - Somnolence [Recovered/Resolved]
  - Head titubation [Recovering/Resolving]
  - Drug interaction [Recovered/Resolved]
  - Toxicity to various agents [Unknown]
  - Sleep apnoea syndrome [Recovering/Resolving]
  - Hyperhidrosis [Unknown]
  - Dyspepsia [Unknown]
  - Drug withdrawal syndrome [Unknown]
